FAERS Safety Report 20310698 (Version 1)
Quarter: 2022Q1

REPORT INFORMATION
  Report Type: Spontaneous
  Country: US (occurrence: None)
  Receive Date: 20220107
  Receipt Date: 20220107
  Transmission Date: 20220423
  Serious: Yes (Other)
  Sender: FDA-Public Use
  Company Number: None

PATIENT
  Age: 0 Day
  Sex: Male
  Weight: 37.2 kg

DRUGS (4)
  1. PRIVIGEN [Suspect]
     Active Substance: HUMAN IMMUNOGLOBULIN G
     Indication: Bruton^s agammaglobulinaemia
  2. calcium carbonate PRN [Concomitant]
  3. ibuprofen PRN [Concomitant]
  4. bismuth subsalicylate PRN [Concomitant]

REACTIONS (2)
  - Skin discolouration [None]
  - Peripheral coldness [None]

NARRATIVE: CASE EVENT DATE: 20211229
